FAERS Safety Report 16045957 (Version 1)
Quarter: 2019Q1

REPORT INFORMATION
  Report Type: Spontaneous
  Country: PH (occurrence: PH)
  Receive Date: 20190307
  Receipt Date: 20190307
  Transmission Date: 20190418
  Serious: Yes (Other)
  Sender: FDA-Public Use
  Company Number: PH-SA-2019SA060960

PATIENT
  Age: 30 Year
  Sex: Male

DRUGS (1)
  1. SEVELAMER SALT NOT SPECIFIED [Suspect]
     Active Substance: SEVELAMER

REACTIONS (3)
  - Haematochezia [Unknown]
  - Rectal ulcer [Unknown]
  - Product deposit [Unknown]
